FAERS Safety Report 7569555-2 (Version None)
Quarter: 2011Q2

REPORT INFORMATION
  Report Type: 
  Country: None (occurrence: None)
  Receive Date: 20110624
  Receipt Date: 20110617
  Transmission Date: 20111010
  Serious: Yes (Death)
  Sender: FDA-Public Use
  Company Number: US-CELGENEUS-163-21880-11062586

PATIENT
  Sex: Male

DRUGS (4)
  1. REVLIMID [Suspect]
     Indication: MULTIPLE MYELOMA
     Dosage: 25 MILLIGRAM
     Route: 048
     Dates: start: 20090401, end: 20100101
  2. LORAZEPAM [Concomitant]
     Route: 065
  3. ATENOLOL [Concomitant]
     Route: 065
  4. MORPHINE [Concomitant]
     Route: 048

REACTIONS (2)
  - DEATH [None]
  - MULTIPLE MYELOMA [None]
